FAERS Safety Report 23862533 (Version 8)
Quarter: 2025Q1

REPORT INFORMATION
  Report Type: Spontaneous
  Country: US (occurrence: US)
  Receive Date: 20240516
  Receipt Date: 20250305
  Transmission Date: 20250408
  Serious: No
  Sender: PFIZER
  Company Number: US-PFIZER INC-PV202400059702

PATIENT
  Age: 76 Year
  Sex: Female
  Weight: 81.65 kg

DRUGS (2)
  1. NORPACE CR [Suspect]
     Active Substance: DISOPYRAMIDE PHOSPHATE
     Indication: Atrial fibrillation
     Dosage: TAKE 1 CAPSULE BY MOUTH EVERY 12 HOURS
     Route: 048
  2. NORPACE CR [Suspect]
     Active Substance: DISOPYRAMIDE PHOSPHATE
     Dosage: 150 MG CAPUSLE; TAKES TWICE A DAY EVERY 12 HOURS LIKE CLOCKWORK
     Dates: start: 20240218

REACTIONS (6)
  - Diarrhoea [Recovered/Resolved]
  - Pollakiuria [Recovering/Resolving]
  - Dry mouth [Not Recovered/Not Resolved]
  - Gastrooesophageal reflux disease [Unknown]
  - Nervousness [Unknown]
  - Off label use [Unknown]
